FAERS Safety Report 14029525 (Version 1)
Quarter: 2017Q4

REPORT INFORMATION
  Report Type: Spontaneous
  Country: US (occurrence: US)
  Receive Date: 20171002
  Receipt Date: 20171002
  Transmission Date: 20180321
  Serious: No
  Sender: FDA-Public Use
  Company Number: US-JAZZ-2017-US-010384

PATIENT
  Sex: Male

DRUGS (18)
  1. LUNESTA [Concomitant]
     Active Substance: ESZOPICLONE
  2. PENTOXIFYLLINE. [Concomitant]
     Active Substance: PENTOXIFYLLINE
  3. SECONAL SODIUM [Concomitant]
     Active Substance: SECOBARBITAL SODIUM
  4. INSPRA [Concomitant]
     Active Substance: EPLERENONE
  5. MODAFINIL. [Concomitant]
     Active Substance: MODAFINIL
  6. XYREM [Suspect]
     Active Substance: SODIUM OXYBATE
     Dosage: 2.25G, BID
     Route: 048
     Dates: start: 201511, end: 2016
  7. XYREM [Suspect]
     Active Substance: SODIUM OXYBATE
     Dosage: 3G, BID
     Route: 048
     Dates: start: 201701
  8. BYSTOLIC [Concomitant]
     Active Substance: NEBIVOLOL HYDROCHLORIDE
  9. CELEBREX [Concomitant]
     Active Substance: CELECOXIB
  10. ACIPHEX [Concomitant]
     Active Substance: RABEPRAZOLE SODIUM
  11. CEREFOLIN NAC                      /06235601/ [Concomitant]
  12. CLONAZEPAM. [Concomitant]
     Active Substance: CLONAZEPAM
  13. OXYCONTIN [Concomitant]
     Active Substance: OXYCODONE HYDROCHLORIDE
  14. ALLOPURINOL. [Concomitant]
     Active Substance: ALLOPURINOL
  15. XYREM [Suspect]
     Active Substance: SODIUM OXYBATE
     Indication: INSOMNIA
     Dosage: 2.25G, BID
     Route: 048
     Dates: start: 201205, end: 2012
  16. AVODART [Concomitant]
     Active Substance: DUTASTERIDE
  17. BACLOFEN. [Concomitant]
     Active Substance: BACLOFEN
  18. NIACIN. [Concomitant]
     Active Substance: NIACIN

REACTIONS (1)
  - Drug ineffective [Not Recovered/Not Resolved]
